FAERS Safety Report 6378780-8 (Version None)
Quarter: 2009Q3

REPORT INFORMATION
  Report Type: 
  Country: None (occurrence: None)
  Receive Date: 20090928
  Receipt Date: 20090916
  Transmission Date: 20100115
  Serious: Yes (Hospitalization)
  Sender: FDA-Public Use
  Company Number: JP-PFIZER INC-2009271442

PATIENT
  Age: 37 Year

DRUGS (2)
  1. SOMAVERT [Suspect]
     Indication: ACROMEGALY
     Route: 058
     Dates: end: 20090801
  2. SANDOSTATIN LAR [Concomitant]

REACTIONS (1)
  - ACIDOSIS [None]
